FAERS Safety Report 11684441 (Version 6)
Quarter: 2017Q3

REPORT INFORMATION
  Report Type: Spontaneous
  Country: US (occurrence: US)
  Receive Date: 20151029
  Receipt Date: 20170711
  Transmission Date: 20171127
  Serious: Yes (Other)
  Sender: FDA-Public Use
  Company Number: US-PFIZER INC-2015278272

PATIENT
  Age: 56 Year
  Sex: Female
  Weight: 58.97 kg

DRUGS (4)
  1. LETROZOLE. [Suspect]
     Active Substance: LETROZOLE
     Indication: BREAST CANCER STAGE IV
     Dosage: 2.5 MG, 1X/DAY
     Route: 048
     Dates: start: 201505, end: 20170608
  2. IBRANCE [Suspect]
     Active Substance: PALBOCICLIB
     Dosage: 75 MG, 1X/DAY (ON FOR 2 WEEKS AND OFF FOR 2 WEEKS)
     Route: 048
     Dates: start: 201505, end: 20170608
  3. IBRANCE [Suspect]
     Active Substance: PALBOCICLIB
     Indication: BREAST CANCER
     Dosage: 125 MG, UNK (3 WEEKS)
     Route: 048
     Dates: start: 201505
  4. IBRANCE [Suspect]
     Active Substance: PALBOCICLIB
     Dosage: 100 MG, UNK
     Route: 048

REACTIONS (6)
  - Intentional product misuse [Unknown]
  - Anaemia [Unknown]
  - White blood cell count decreased [Not Recovered/Not Resolved]
  - Weight increased [Unknown]
  - Fatigue [Unknown]
  - Neoplasm progression [Not Recovered/Not Resolved]

NARRATIVE: CASE EVENT DATE: 20150817
